FAERS Safety Report 7635918 (Version 5)
Quarter: 2013Q1

REPORT INFORMATION
  Report Type: Spontaneous
  Country: JP (occurrence: JP)
  Receive Date: 20101021
  Receipt Date: 20130218
  Transmission Date: 20140127
  Serious: Yes (Hospitalization)
  Sender: FDA-Public Use
  Company Number: JP-BAYER-201012739BYL

PATIENT
  Age: 33 Year
  Sex: Female

DRUGS (10)
  1. BETAFERON [INTERFERON BETA-1B] [Suspect]
     Indication: MULTIPLE SCLEROSIS
     Dosage: 8 MIU, QOD
     Route: 058
     Dates: start: 200208, end: 200912
  2. BETAFERON [INTERFERON BETA-1B] [Suspect]
     Indication: MULTIPLE SCLEROSIS
     Dosage: UNK
     Dates: start: 20091112, end: 20091114
  3. MYSLEE [Concomitant]
     Indication: INSOMNIA
     Dosage: DAILY DOSE 5 MG
     Route: 048
     Dates: start: 20090519
  4. RESLIN [Concomitant]
     Indication: INSOMNIA
     Dosage: DAILY DOSE 25 MG
     Route: 048
     Dates: start: 20080630, end: 20091230
  5. TOLEDOMIN [Concomitant]
     Indication: DEPRESSION
     Dosage: DAILY DOSE 50 MG
     Route: 048
     Dates: start: 20090519
  6. TOLEDOMIN [Concomitant]
     Indication: DEPRESSION
     Dosage: DAILY DOSE 30 MG
     Route: 048
     Dates: start: 20090825
  7. METHYCOBAL [Concomitant]
     Indication: MULTIPLE SCLEROSIS
     Dosage: DAILY DOSE 1000 ?G
     Route: 048
     Dates: start: 2002, end: 200910
  8. ALFAROL [Concomitant]
     Indication: OSTEOPOROSIS PROPHYLAXIS
     Dosage: DAILY DOSE 2 ?G
     Route: 048
     Dates: start: 20071016, end: 200911
  9. ALLEGRA [Concomitant]
     Indication: ASTHMA
     Dosage: DAILY DOSE 60 MG
     Route: 048
     Dates: start: 20090825, end: 200911
  10. LOXONIN [Concomitant]
     Dosage: DAILY DOSE 60 MG
     Route: 048
     Dates: start: 200309

REACTIONS (1)
  - Nephrotic syndrome [Recovered/Resolved]
